FAERS Safety Report 25169213 (Version 1)
Quarter: 2025Q2

REPORT INFORMATION
  Report Type: Report from Study
  Country: GB (occurrence: GB)
  Receive Date: 20250407
  Receipt Date: 20250407
  Transmission Date: 20250717
  Serious: Yes (Hospitalization)
  Sender: TEVA
  Company Number: GB-TEVA-VS-3316883

PATIENT
  Age: 49 Year
  Sex: Male

DRUGS (1)
  1. AJOVY [Suspect]
     Active Substance: FREMANEZUMAB-VFRM
     Indication: Migraine
     Dosage: AJOVY 225MG/1.5ML PFP 3
     Route: 058
     Dates: end: 20250324

REACTIONS (2)
  - Paralysis [Recovering/Resolving]
  - Spinal pain [Unknown]

NARRATIVE: CASE EVENT DATE: 20250101
